FAERS Safety Report 8844930 (Version 2)
Quarter: 2012Q4

REPORT INFORMATION
  Report Type: Spontaneous
  Country: US (occurrence: None)
  Receive Date: 20120925
  Receipt Date: 20120925
  Transmission Date: 20130627
  Serious: Yes (Other)
  Sender: FDA-Public Use
  Company Number: RB-31253-2011

PATIENT
  Age: 15 Month
  Sex: Female

DRUGS (3)
  1. SUBOXONE [Suspect]
     Indication: ACCIDENTAL EXPOSURE TO PRODUCT
     Dosage: Sublingual Film
     Route: 060
     Dates: start: 20110727, end: 20110727
  2. SUBOXONE [Suspect]
     Indication: ACCIDENTAL EXPOSURE TO PRODUCT
     Dosage: 1/4 of a 8 mg Film, Oral
     Route: 048
  3. SUBOXONE [Suspect]
     Indication: ACCIDENTAL EXPOSURE TO PRODUCT
     Dosage: 1/3 OF 8/2 MGS ORAL
     Route: 048

REACTIONS (3)
  - Accidental exposure to product [None]
  - Gait disturbance [None]
  - Miosis [None]
